FAERS Safety Report 7790603-9 (Version None)
Quarter: 2011Q3

REPORT INFORMATION
  Report Type: 
  Country: None (occurrence: None)
  Receive Date: 20110930
  Receipt Date: 20110922
  Transmission Date: 20111222
  Serious: Yes (Other)
  Sender: FDA-Public Use
  Company Number: PHHY2011BR85759

PATIENT
  Age: 52 Year
  Sex: Male
  Weight: 75.5 kg

DRUGS (7)
  1. EXFORGE [Suspect]
     Dosage: 320 MG VALS AND 5 MG AMLO
  2. CIPROFIBRATE [Concomitant]
     Dosage: 100 MG, DAILY
  3. ISOSORBIDE MONONITRATE [Concomitant]
     Dosage: 40 MG, DAILY
  4. ATENOLOL [Concomitant]
     Dosage: 100 MG, DAILY
  5. ATORVASTATIN [Concomitant]
     Dosage: 20 MG, DAILY
  6. ALLOPURINOL [Concomitant]
     Dosage: 100 MG, DAILY
  7. ASPIRIN [Concomitant]
     Dosage: 100 MG, DAILY

REACTIONS (1)
  - RENAL IMPAIRMENT [None]
